FAERS Safety Report 4462814-1 (Version None)
Quarter: 2004Q3

REPORT INFORMATION
  Report Type: 
  Country: None (occurrence: None)
  Receive Date: 20040927
  Receipt Date: 20040913
  Transmission Date: 20050211
  Serious: Yes (Death, Hospitalization)
  Sender: FDA-Public Use
  Company Number: HQWYE233603JUN04

PATIENT
  Age: 67 Year
  Sex: Female

DRUGS (8)
  1. CORDARONE [Suspect]
     Indication: ARRHYTHMIA
     Dosage: SEE IMAGE
     Dates: start: 19990301, end: 19990101
  2. CORDARONE [Suspect]
     Indication: ARRHYTHMIA
     Dosage: SEE IMAGE
     Dates: start: 19990101, end: 20000301
  3. LANOXIN [Concomitant]
  4. SYNTHROID [Concomitant]
  5. LASIX [Concomitant]
  6. INSULIN [Concomitant]
  7. AMARYL [Concomitant]
  8. GLUCOPHAGE [Suspect]

REACTIONS (14)
  - ANOREXIA [None]
  - BALANCE DISORDER [None]
  - CELLULITIS [None]
  - CHEST PAIN [None]
  - DRUG LEVEL DECREASED [None]
  - DYSPNOEA [None]
  - EPISTAXIS [None]
  - FATIGUE [None]
  - HEPATIC CIRRHOSIS [None]
  - NAUSEA [None]
  - PROTHROMBIN TIME PROLONGED [None]
  - PYREXIA [None]
  - SOMNOLENCE [None]
  - SPLENOMEGALY [None]
